FAERS Safety Report 23885948 (Version 1)
Quarter: 2024Q2

REPORT INFORMATION
  Report Type: Spontaneous
  Country: HK (occurrence: HK)
  Receive Date: 20240522
  Receipt Date: 20240522
  Transmission Date: 20240716
  Serious: Yes (Life-Threatening, Other)
  Sender: FDA-Public Use
  Company Number: HK-PFIZER INC-PV202400065765

PATIENT
  Age: 42 Year
  Sex: Female

DRUGS (2)
  1. METHYLPREDNISOLONE SODIUM SUCCINATE [Suspect]
     Active Substance: METHYLPREDNISOLONE SODIUM SUCCINATE
     Indication: Acute disseminated encephalomyelitis
     Dosage: UNK
     Route: 042
  2. HUMAN IMMUNOGLOBULIN G [Suspect]
     Active Substance: HUMAN IMMUNOGLOBULIN G
     Indication: Acute disseminated encephalomyelitis
     Dosage: UNK
     Route: 042

REACTIONS (3)
  - Reversible cerebral vasoconstriction syndrome [Recovered/Resolved]
  - Hemiparesis [Recovered/Resolved]
  - Off label use [Unknown]
